FAERS Safety Report 6921299-3 (Version None)
Quarter: 2010Q3

REPORT INFORMATION
  Report Type: 
  Country: None (occurrence: None)
  Receive Date: 20100812
  Receipt Date: 20100805
  Transmission Date: 20110219
  Serious: Yes (Hospitalization)
  Sender: FDA-Public Use
  Company Number: B0668629A

PATIENT
  Sex: Female

DRUGS (3)
  1. ZOVIRAX [Suspect]
     Route: 042
     Dates: start: 20100323, end: 20100328
  2. RIFAMPICIN [Concomitant]
     Route: 065
     Dates: start: 20100301
  3. ROCEPHIN [Concomitant]
     Route: 065
     Dates: start: 20100301

REACTIONS (3)
  - BLOOD CREATININE INCREASED [None]
  - RENAL FAILURE ACUTE [None]
  - RENAL TUBULAR DISORDER [None]
